FAERS Safety Report 14184656 (Version 1)
Quarter: 2017Q4

REPORT INFORMATION
  Report Type: Spontaneous
  Country: US (occurrence: US)
  Receive Date: 20171114
  Receipt Date: 20171114
  Transmission Date: 20180321
  Serious: No
  Sender: FDA-Public Use
  Company Number: US-ASTRAZENECA-2017SF14579

PATIENT
  Sex: Male

DRUGS (1)
  1. CASODEX [Suspect]
     Active Substance: BICALUTAMIDE
     Indication: PROSTATE CANCER
     Route: 048

REACTIONS (6)
  - Fatigue [Unknown]
  - Chest pain [Unknown]
  - Breast pain [Unknown]
  - Cardiomyopathy [Unknown]
  - Nipple pain [Unknown]
  - Intentional product misuse [Unknown]
